FAERS Safety Report 5995064-8 (Version None)
Quarter: 2008Q4

REPORT INFORMATION
  Report Type: 
  Country: None (occurrence: None)
  Receive Date: 20081212
  Receipt Date: 20080924
  Transmission Date: 20090506
  Serious: No
  Sender: FDA-Public Use
  Company Number: US-ABBOTT-08P-163-0477999-00

PATIENT
  Sex: Male
  Weight: 113.5 kg

DRUGS (6)
  1. HUMIRA [Suspect]
     Indication: PSORIASIS
     Dates: start: 20080902, end: 20080902
  2. HUMIRA [Suspect]
     Dates: start: 20080916, end: 20080916
  3. HUMIRA [Suspect]
     Dates: start: 20080816, end: 20080816
  4. HUMIRA [Suspect]
  5. DILANTIN [Concomitant]
     Indication: EPILEPSY
  6. NAPROXEN [Concomitant]
     Indication: INFLAMMATION

REACTIONS (2)
  - ARTHRALGIA [None]
  - OEDEMA PERIPHERAL [None]
